FAERS Safety Report 5318476-4 (Version None)
Quarter: 2007Q2

REPORT INFORMATION
  Report Type: 
  Country: None (occurrence: None)
  Receive Date: 20070501
  Receipt Date: 20070419
  Transmission Date: 20071010
  Serious: Yes (Other)
  Sender: FDA-Public Use
  Company Number: GXKR2007GB03607

PATIENT
  Age: 83 Year
  Sex: Male

DRUGS (3)
  1. MIRTAZAPINE [Suspect]
     Indication: DEPRESSION
     Dosage: 15 MG, ORAL
     Route: 048
     Dates: start: 20070309, end: 20070322
  2. CITALOPRAM HYDROBROMIDE [Concomitant]
  3. FLUOXETINE [Concomitant]

REACTIONS (6)
  - AFFECTIVE DISORDER [None]
  - ARTHRALGIA [None]
  - MYALGIA [None]
  - PAIN [None]
  - SLEEP DISORDER [None]
  - WEIGHT INCREASED [None]
